FAERS Safety Report 16530848 (Version 1)
Quarter: 2019Q3

REPORT INFORMATION
  Report Type: Spontaneous
  Country: US (occurrence: US)
  Receive Date: 20190704
  Receipt Date: 20190704
  Transmission Date: 20191004
  Serious: No
  Sender: FDA-Public Use
  Company Number: US-JNJFOC-20190700613

PATIENT
  Sex: Female
  Weight: 72.64 kg

DRUGS (3)
  1. WOMENS ROGAINE UNSCENTED [Suspect]
     Active Substance: MINOXIDIL
     Indication: ALOPECIA
     Dosage: RECOMMENDED HALF CAPFUL ONCE DAILY
     Route: 061
     Dates: start: 201904
  2. ROSUVASTATIN. [Concomitant]
     Active Substance: ROSUVASTATIN
     Indication: HYPERTENSION
     Route: 065
  3. BABY ASPIRIN [Concomitant]
     Active Substance: ASPIRIN
     Indication: PRODUCT USED FOR UNKNOWN INDICATION
     Route: 065

REACTIONS (2)
  - Product use in unapproved indication [Recovered/Resolved]
  - Alopecia [Recovered/Resolved]
